FAERS Safety Report 10768913 (Version 3)
Quarter: 2015Q1

REPORT INFORMATION
  Report Type: Report from Study
  Country: CA (occurrence: CA)
  Receive Date: 20150206
  Receipt Date: 20150219
  Transmission Date: 20150721
  Serious: Yes (Hospitalization, Other)
  Sender: FDA-Public Use
  Company Number: CA-ABBVIE-15K-028-1341178-00

PATIENT
  Age: 21 Year
  Sex: Female
  Weight: 59.47 kg

DRUGS (1)
  1. HUMIRA [Suspect]
     Active Substance: ADALIMUMAB
     Indication: CROHN^S DISEASE
     Route: 058
     Dates: start: 20150115

REACTIONS (3)
  - Intestinal obstruction [Unknown]
  - Intestinal perforation [Unknown]
  - Abscess rupture [Recovering/Resolving]

NARRATIVE: CASE EVENT DATE: 20150128
